FAERS Safety Report 5210861-4 (Version None)
Quarter: 2007Q1

REPORT INFORMATION
  Report Type: 
  Country: None (occurrence: None)
  Receive Date: 20070117
  Receipt Date: 20070112
  Transmission Date: 20070707
  Serious: Yes (Death)
  Sender: FDA-Public Use
  Company Number: IT-PFIZER INC-2007003607

PATIENT
  Sex: Female

DRUGS (2)
  1. EXEMESTANE [Suspect]
     Indication: BREAST CANCER FEMALE
     Route: 048
     Dates: start: 20060628, end: 20061201
  2. DECAPEPTYL [Suspect]
     Indication: BREAST CANCER FEMALE
     Dates: start: 20060328, end: 20061101

REACTIONS (1)
  - DEATH [None]
